FAERS Safety Report 9895165 (Version 2)
Quarter: 2014Q1

REPORT INFORMATION
  Report Type: Spontaneous
  Country: US (occurrence: US)
  Receive Date: 20140213
  Receipt Date: 20140213
  Transmission Date: 20141002
  Serious: No
  Sender: FDA-Public Use
  Company Number: US-BRISTOL-MYERS SQUIBB COMPANY-18921551

PATIENT
  Age: 40 Year
  Sex: Female
  Weight: 58.96 kg

DRUGS (1)
  1. ABATACEPT SUBQ INJECTION 125MG/ML [Suspect]
     Indication: RHEUMATOID ARTHRITIS
     Dosage: LAST INJ:19MAY2013?ORENCIA IV WAS TAKEN FORM JAN12-DEC12
     Route: 058

REACTIONS (2)
  - Injection site pain [Unknown]
  - Product quality issue [Unknown]
